FAERS Safety Report 5309545-3 (Version None)
Quarter: 2007Q2

REPORT INFORMATION
  Report Type: 
  Country: None (occurrence: None)
  Receive Date: 20070427
  Receipt Date: 20061026
  Transmission Date: 20071010
  Serious: No
  Sender: FDA-Public Use
  Company Number: 2006GPS01087

PATIENT
  Age: 39 Year
  Weight: 72.7 kg

DRUGS (1)
  1. DEXEDRINE [Suspect]
     Indication: DRUG USE FOR UNKNOWN INDICATION
     Route: 048

REACTIONS (1)
  - HEART RATE INCREASED [None]
